FAERS Safety Report 4594011-3 (Version None)
Quarter: 2005Q1

REPORT INFORMATION
  Report Type: 
  Country: None (occurrence: None)
  Receive Date: 20050218
  Receipt Date: 20050202
  Transmission Date: 20050727
  Serious: Yes (Life-Threatening, Hospitalization, Other)
  Sender: FDA-Public Use
  Company Number: 2005013952

PATIENT
  Age: 55 Year
  Sex: Female

DRUGS (3)
  1. CELEBREX [Suspect]
     Indication: OSTEOARTHRITIS
     Dosage: 200 MG (200 MG, 1 IN 1 D), ORAL
     Route: 048
     Dates: start: 20030101, end: 20041201
  2. DI-GESIC (DEXTROPROPOXYPHENE, PARACETAMOL) [Concomitant]
  3. ALL OTHER THERAPEUTIC PRODUCT [Concomitant]

REACTIONS (2)
  - COMA [None]
  - RUPTURED CEREBRAL ANEURYSM [None]
